FAERS Safety Report 7472291-4 (Version None)
Quarter: 2011Q2

REPORT INFORMATION
  Report Type: 
  Country: None (occurrence: None)
  Receive Date: 20110511
  Receipt Date: 20110422
  Transmission Date: 20111010
  Serious: No
  Sender: FDA-Public Use
  Company Number: US-B.I. PHARMACEUTICALS,INC./RIDGEFIELD-2011-BP-08513BP

PATIENT
  Age: 78 Year
  Sex: Male

DRUGS (26)
  1. DILTIAZEM [Concomitant]
     Indication: HYPERTENSION
     Dosage: 120 MG
     Route: 048
     Dates: start: 20090101
  2. LYRICA [Concomitant]
     Indication: FIBROMYALGIA
     Dosage: 100 MG
     Route: 048
     Dates: start: 20101101
  3. ANDROGEL [Concomitant]
     Dosage: 50 MG
     Route: 048
     Dates: start: 20101101
  4. FLOMAX [Concomitant]
     Dosage: 0.4 MG
     Route: 048
     Dates: start: 20090101
  5. FLOMAX [Concomitant]
     Dosage: 75 MG
     Route: 048
     Dates: start: 20101101
  6. NASONEX SINUS SPRAY [Concomitant]
     Route: 045
     Dates: start: 20100101
  7. ACIPHEX [Concomitant]
     Dosage: 50 MG
     Route: 048
     Dates: start: 20101101
  8. CIALIS [Concomitant]
     Dosage: 5 MG
     Route: 048
     Dates: start: 20100101
  9. ANDROGEL [Concomitant]
     Dosage: 75 MG
     Route: 048
     Dates: start: 20101101
  10. NASONEX SINUS SPRAY [Concomitant]
     Dosage: 75 MG
     Route: 048
     Dates: start: 20101101
  11. NASONEX SINUS SPRAY [Concomitant]
     Dosage: 50 MG
     Route: 048
     Dates: start: 20101101
  12. RAPAFLO [Concomitant]
  13. FLOMAX [Concomitant]
     Dosage: 50 MG
     Route: 048
     Dates: start: 20101101
  14. PRAVACHOL [Concomitant]
  15. LYRICA [Concomitant]
     Dosage: 75 MG
     Route: 048
     Dates: start: 20101101
  16. RAPAFLO [Concomitant]
     Dosage: 50 MG
     Route: 048
     Dates: start: 20101101
  17. ACIPHEX [Concomitant]
  18. CIALIS [Concomitant]
     Dosage: 50 MG
     Route: 048
     Dates: start: 20101101
  19. PRAVACHOL [Concomitant]
     Dosage: 75 MG
     Route: 048
     Dates: start: 20101101
  20. RAPAFLO [Concomitant]
     Dosage: 75 MG
     Route: 048
     Dates: start: 20101101
  21. ACIPHEX [Concomitant]
     Dosage: 75 MG
     Route: 048
     Dates: start: 20101101
  22. PRAVACHOL [Concomitant]
     Dosage: 50 MG
     Route: 048
     Dates: start: 20101101
  23. PRADAXA [Suspect]
     Indication: ATRIAL FIBRILLATION
     Dosage: 300 MG
     Route: 048
     Dates: start: 20110304
  24. LYRICA [Concomitant]
     Dosage: 50 MG
     Route: 048
     Dates: start: 20101101
  25. CIALIS [Concomitant]
     Dosage: 75 MG
     Route: 048
     Dates: start: 20101101
  26. ANDROGEL [Concomitant]
     Route: 061

REACTIONS (4)
  - GLOSSODYNIA [None]
  - DIZZINESS [None]
  - CONTUSION [None]
  - SWOLLEN TONGUE [None]
